FAERS Safety Report 15990493 (Version 1)
Quarter: 2019Q1

REPORT INFORMATION
  Report Type: Spontaneous
  Country: FR (occurrence: FR)
  Receive Date: 20190221
  Receipt Date: 20190221
  Transmission Date: 20190418
  Serious: Yes (Hospitalization)
  Sender: FDA-Public Use
  Company Number: FR-ASTRAZENECA-2019SE25666

PATIENT
  Age: 74 Year
  Sex: Male

DRUGS (4)
  1. BISOPROLOL [Suspect]
     Active Substance: BISOPROLOL
     Route: 048
     Dates: start: 20190108, end: 20190113
  2. PREVISCAN (FLUINDIONE) [Suspect]
     Active Substance: FLUINDIONE
     Dosage: 15 MG 3 DAYS WEEKLY THEN 20 MG 4 DAYS WEEKLY
     Route: 048
     Dates: start: 20190108, end: 20190113
  3. MOPRAL [Suspect]
     Active Substance: OMEPRAZOLE
     Route: 048
     Dates: start: 20190108, end: 20190113
  4. LASILIX FAIBLE [Suspect]
     Active Substance: FUROSEMIDE
     Route: 048
     Dates: start: 20190108, end: 20190113

REACTIONS (4)
  - Palpitations [Recovered/Resolved]
  - Bradycardia [Recovered/Resolved]
  - International normalised ratio increased [Recovered/Resolved]
  - Chest pain [Recovered/Resolved]

NARRATIVE: CASE EVENT DATE: 20190113
